FAERS Safety Report 8449523-9 (Version None)
Quarter: 2012Q2

REPORT INFORMATION
  Report Type: 
  Country: None (occurrence: None)
  Receive Date: 20120619
  Receipt Date: 20120606
  Transmission Date: 20120825
  Serious: Yes (Other)
  Sender: FDA-Public Use
  Company Number: US-MYLANLABS-2012S1011779

PATIENT
  Age: 46 Year
  Sex: Female
  Weight: 75 kg

DRUGS (7)
  1. INFUVITE PEDIATRIC [Interacting]
     Indication: HYPOPHAGIA
     Dosage: 150 MICROG DAILY
     Route: 051
  2. INTRALIPID /00272201/ [Interacting]
     Indication: HYPOPHAGIA
     Dosage: 20% SOYA OIL EMULSION (250ML), 132.5 MICROG VITAMIN K ON MON, WED, FRI
     Route: 051
  3. VANCOMYCIN [Suspect]
     Indication: SUBCUTANEOUS ABSCESS
     Route: 065
  4. CEFEPIME [Suspect]
     Indication: SUBCUTANEOUS ABSCESS
     Route: 065
  5. NAFCILLIN [Suspect]
     Indication: ENDOCARDITIS STAPHYLOCOCCAL
     Route: 065
  6. HEPARIN [Concomitant]
     Indication: DEEP VEIN THROMBOSIS
     Route: 065
  7. WARFARIN SODIUM [Interacting]
     Indication: DEEP VEIN THROMBOSIS
     Dosage: 1MG DAILY
     Route: 065

REACTIONS (3)
  - INHIBITORY DRUG INTERACTION [None]
  - DRUG RESISTANCE [None]
  - VITAMIN K DEFICIENCY [None]
